FAERS Safety Report 5080937-3 (Version None)
Quarter: 2006Q3

REPORT INFORMATION
  Report Type: 
  Country: None (occurrence: None)
  Receive Date: 20060811
  Receipt Date: 20060728
  Transmission Date: 20061208
  Serious: Yes (Death, Hospitalization)
  Sender: FDA-Public Use
  Company Number: 163-20785-06050306

PATIENT
  Age: 73 Year
  Sex: Male

DRUGS (1)
  1. THALOMID [Suspect]
     Indication: MULTIPLE MYELOMA
     Dosage: 200 MG Q HS, 1 IN 1 D, ORAL
     Route: 048
     Dates: start: 20060424, end: 20060503

REACTIONS (3)
  - DISEASE PROGRESSION [None]
  - RECTAL CANCER [None]
  - RECTAL HAEMORRHAGE [None]
